FAERS Safety Report 8183595-4 (Version None)
Quarter: 2012Q1

REPORT INFORMATION
  Report Type: 
  Country: None (occurrence: None)
  Receive Date: 20120305
  Receipt Date: 20120223
  Transmission Date: 20120608
  Serious: No
  Sender: FDA-Public Use
  Company Number: US-JNJFOC-20120212186

PATIENT
  Sex: Female
  Weight: 84.82 kg

DRUGS (9)
  1. PROMETRIUM [Concomitant]
     Indication: NEOPLASM PROPHYLAXIS
     Dosage: 93/40 MG ONCE A DAILY
     Route: 048
     Dates: start: 20100101
  2. DURAGESIC-100 [Suspect]
     Route: 062
     Dates: start: 20111101
  3. ZOFRAN [Concomitant]
     Indication: PROPHYLAXIS OF NAUSEA AND VOMITING
     Route: 048
     Dates: start: 20110101
  4. PANTOPRAZOLE SODIUM [Concomitant]
     Indication: GASTRIC DISORDER
     Dosage: 93/40 MG ONCE A DAILY
     Route: 048
  5. FIORICET [Concomitant]
     Indication: MIGRAINE
     Route: 048
  6. DURAGESIC-100 [Suspect]
     Indication: ARTHRALGIA
     Route: 062
  7. DIOVAN [Concomitant]
     Indication: BLOOD PRESSURE
     Route: 048
     Dates: start: 20100101
  8. MAXALT [Concomitant]
     Indication: MIGRAINE
     Route: 048
  9. ESTRADOT PATCH [Concomitant]
     Indication: HORMONE REPLACEMENT THERAPY
     Dosage: 93/40 MG ONCE A DAILY
     Route: 062
     Dates: start: 20100101

REACTIONS (5)
  - SKIN IRRITATION [None]
  - PRODUCT QUALITY ISSUE [None]
  - LARYNGITIS [None]
  - APPLICATION SITE PRURITUS [None]
  - WRONG TECHNIQUE IN DRUG USAGE PROCESS [None]
